FAERS Safety Report 24443758 (Version 1)
Quarter: 2024Q4

REPORT INFORMATION
  Report Type: Spontaneous
  Country: IN (occurrence: IN)
  Receive Date: 20241016
  Receipt Date: 20241016
  Transmission Date: 20250115
  Serious: Yes (Other)
  Sender: BAYER HEALTHCARE LLC
  Company Number: IN-BAYER-2024A143044

PATIENT
  Age: 31 Year
  Sex: Female

DRUGS (2)
  1. NAPROXEN SODIUM [Suspect]
     Active Substance: NAPROXEN SODIUM
     Indication: Still^s disease
     Dosage: UNK
  2. NAPROXEN SODIUM [Suspect]
     Active Substance: NAPROXEN SODIUM
     Indication: Still^s disease
     Dosage: 500 MG, BID

REACTIONS (4)
  - Drug-induced liver injury [Recovered/Resolved]
  - Off label use [None]
  - Rash [Recovered/Resolved]
  - Contraindicated product administered [None]
